FAERS Safety Report 10472693 (Version 1)
Quarter: 2014Q3

REPORT INFORMATION
  Report Type: Spontaneous
  Country: US (occurrence: None)
  Receive Date: 20140923
  Receipt Date: 20140923
  Transmission Date: 20150326
  Serious: No
  Sender: FDA-Public Use
  Company Number: None

PATIENT
  Age: 52 Year
  Sex: Female

DRUGS (1)
  1. GLEEVEC [Suspect]
     Active Substance: IMATINIB MESYLATE
     Indication: CHRONIC MYELOID LEUKAEMIA
     Dosage: 400 X 1.5 TAB = 600 MG ONCE A DAY WITH FOOD
     Route: 048
     Dates: start: 20130419

REACTIONS (2)
  - Drug interaction [None]
  - Hot flush [None]

NARRATIVE: CASE EVENT DATE: 20140919
